FAERS Safety Report 25432214 (Version 1)
Quarter: 2025Q2

REPORT INFORMATION
  Report Type: Spontaneous
  Country: US (occurrence: US)
  Receive Date: 20250613
  Receipt Date: 20250613
  Transmission Date: 20250716
  Serious: No
  Sender: BIOVITRUM
  Company Number: US-BIOVITRUM-2025-US-008132

PATIENT
  Age: 70 Year
  Sex: Female

DRUGS (4)
  1. VONJO [Suspect]
     Active Substance: PACRITINIB
     Indication: Polycythaemia vera
     Route: 048
  2. METHIMAZOLE [Concomitant]
     Active Substance: METHIMAZOLE
     Indication: Product used for unknown indication
  3. HYDROCHLOROTHIAZIDE\VALSARTAN [Concomitant]
     Active Substance: HYDROCHLOROTHIAZIDE\VALSARTAN
     Indication: Product used for unknown indication
  4. OXCARBAZEPINE [Concomitant]
     Active Substance: OXCARBAZEPINE
     Indication: Product used for unknown indication

REACTIONS (2)
  - Abdominal discomfort [Unknown]
  - Off label use [Not Recovered/Not Resolved]
